FAERS Safety Report 15534885 (Version 1)
Quarter: 2018Q4

REPORT INFORMATION
  Report Type: Spontaneous
  Country: US (occurrence: US)
  Receive Date: 20181022
  Receipt Date: 20181022
  Transmission Date: 20190205
  Serious: No
  Sender: FDA-Public Use
  Company Number: US-TEVA-2018-US-963737

PATIENT
  Age: 62 Year
  Sex: Female

DRUGS (2)
  1. CLONAZEPAM TEVA [Suspect]
     Active Substance: CLONAZEPAM
     Indication: ANXIETY DISORDER
     Dosage: 1.5 MILLIGRAM DAILY; 0.5 MG IN THE MORNING AND TWO 0.5 MG PRIOR TO BED
     Route: 065
     Dates: start: 1996
  2. CLONAZEPAM TEVA [Suspect]
     Active Substance: CLONAZEPAM
     Indication: OBSESSIVE-COMPULSIVE DISORDER
     Dates: start: 1996

REACTIONS (2)
  - Feeling jittery [Unknown]
  - Nausea [Unknown]
